FAERS Safety Report 6309841-7 (Version None)
Quarter: 2009Q3

REPORT INFORMATION
  Report Type: 
  Country: None (occurrence: None)
  Receive Date: 20090814
  Receipt Date: 20090804
  Transmission Date: 20100115
  Serious: Yes (Other)
  Sender: FDA-Public Use
  Company Number: GB-JNJFOC-20090800814

PATIENT
  Age: 46 Year
  Sex: Female
  Weight: 64 kg

DRUGS (5)
  1. REMICADE [Suspect]
     Indication: RHEUMATOID ARTHRITIS
     Route: 042
  2. DICLOFENAC [Concomitant]
  3. METHOTREXATE [Concomitant]
  4. FERROUS SULFATE TAB [Concomitant]
  5. SALBUTAMOL [Concomitant]

REACTIONS (1)
  - BASAL CELL CARCINOMA [None]
